FAERS Safety Report 6885842-5 (Version None)
Quarter: 2010Q3

REPORT INFORMATION
  Report Type: 
  Country: None (occurrence: None)
  Receive Date: 20100729
  Receipt Date: 20080714
  Transmission Date: 20110219
  Serious: Yes (Other)
  Sender: FDA-Public Use
  Company Number: US-PFIZER INC-2008042581

PATIENT
  Sex: Female
  Weight: 67.1 kg

DRUGS (2)
  1. CELEBREX [Suspect]
     Indication: NECK PAIN
     Route: 048
     Dates: start: 20050101, end: 20080513
  2. CELEBREX [Suspect]
     Indication: BACK PAIN

REACTIONS (6)
  - HYPERSENSITIVITY [None]
  - PARAESTHESIA ORAL [None]
  - RASH [None]
  - SWELLING [None]
  - TACHYCARDIA [None]
  - TONGUE DISORDER [None]
